FAERS Safety Report 13306979 (Version 1)
Quarter: 2017Q1

REPORT INFORMATION
  Report Type: Spontaneous
  Country: SG (occurrence: SG)
  Receive Date: 20170308
  Receipt Date: 20170308
  Transmission Date: 20170428
  Serious: Yes (Hospitalization, Other)
  Sender: FDA-Public Use
  Company Number: SG-BAYER-2017-044253

PATIENT

DRUGS (1)
  1. ACETYLSALICYLIC ACID (} 100 MG) [Suspect]
     Active Substance: ASPIRIN
     Dosage: UNK

REACTIONS (1)
  - Angioedema [Not Recovered/Not Resolved]

NARRATIVE: CASE EVENT DATE: 20170201
